FAERS Safety Report 7072456-X (Version None)
Quarter: 2010Q4

REPORT INFORMATION
  Report Type: 
  Country: None (occurrence: None)
  Receive Date: 20101029
  Receipt Date: 20100813
  Transmission Date: 20110411
  Serious: No
  Sender: FDA-Public Use
  Company Number: A0842161A

PATIENT
  Age: 67 Year
  Sex: Female
  Weight: 88.6 kg

DRUGS (2)
  1. ADVAIR DISKUS 100/50 [Suspect]
     Indication: PRODUCT USED FOR UNKNOWN INDICATION
     Route: 065
  2. ADVAIR DISKUS 100/50 [Suspect]
     Route: 065

REACTIONS (4)
  - DRUG HYPERSENSITIVITY [None]
  - ILL-DEFINED DISORDER [None]
  - MUSCULAR WEAKNESS [None]
  - PALPITATIONS [None]
